FAERS Safety Report 10223777 (Version 1)
Quarter: 2014Q2

REPORT INFORMATION
  Report Type: Report from Study
  Country: JP (occurrence: JP)
  Receive Date: 20140609
  Receipt Date: 20140609
  Transmission Date: 20141212
  Serious: Yes (Other)
  Sender: FDA-Public Use
  Company Number: JP-ASTELLAS-2014JP007543

PATIENT
  Age: 29 Year
  Sex: Male

DRUGS (2)
  1. TACROLIMUS [Suspect]
     Indication: BONE MARROW TRANSPLANT
     Route: 065
  2. AMPHOTERICIN B, LIPOSOME [Concomitant]
     Indication: BRONCHOPULMONARY ASPERGILLOSIS
     Dosage: 1.0 MG/KG, ONCE DAILY
     Route: 041

REACTIONS (1)
  - Renal disorder [Unknown]
